FAERS Safety Report 16352137 (Version 1)
Quarter: 2019Q2

REPORT INFORMATION
  Report Type: Spontaneous
  Country: SE (occurrence: SE)
  Receive Date: 20190524
  Receipt Date: 20190524
  Transmission Date: 20190711
  Serious: Yes (Hospitalization)
  Sender: FDA-Public Use
  Company Number: SE-ROCHE-2323810

PATIENT
  Age: 69 Year
  Sex: Female

DRUGS (9)
  1. ALVEDON [Concomitant]
     Active Substance: ACETAMINOPHEN
     Route: 065
  2. TECENTRIQ [Suspect]
     Active Substance: ATEZOLIZUMAB
     Indication: ADENOCARCINOMA
     Route: 041
  3. BETAPRED [Concomitant]
     Active Substance: BETAMETHASONE SODIUM PHOSPHATE
  4. ATENOLOL. [Concomitant]
     Active Substance: ATENOLOL
  5. OMEPRAZOL [OMEPRAZOLE] [Concomitant]
     Active Substance: OMEPRAZOLE
  6. CHLORAMPHENICOL [Concomitant]
     Active Substance: CHLORAMPHENICOL
  7. VAGIFEM [Concomitant]
     Active Substance: ESTRADIOL
  8. ZOPICLONE [Concomitant]
     Active Substance: ZOPICLONE
     Route: 065
  9. ATORVASTATIN [Concomitant]
     Active Substance: ATORVASTATIN

REACTIONS (1)
  - Hyponatraemia [Recovering/Resolving]

NARRATIVE: CASE EVENT DATE: 20190401
